FAERS Safety Report 6013794-9 (Version None)
Quarter: 2008Q4

REPORT INFORMATION
  Report Type: 
  Country: None (occurrence: None)
  Receive Date: 20081219
  Receipt Date: 20081208
  Transmission Date: 20090506
  Serious: Yes (Hospitalization, Other)
  Sender: FDA-Public Use
  Company Number: US-PFIZER INC-2008151346

PATIENT
  Sex: Female
  Weight: 68.038 kg

DRUGS (10)
  1. XANAX [Suspect]
  2. NEURONTIN [Suspect]
     Indication: FIBROMYALGIA
  3. RELPAX [Suspect]
     Indication: MIGRAINE
     Dosage: 40 MG, UNK
  4. ZOLOFT [Suspect]
     Indication: DEPRESSION
     Dosage: 100 MG, UNK
     Dates: start: 20080101
  5. HALCION [Suspect]
     Indication: SLEEP DISORDER
     Dosage: .25 MG, UNK
  6. ALPRAZOLAM [Suspect]
     Dosage: UNK
  7. GABAPENTIN [Suspect]
     Dosage: UNK
  8. GABAPENTIN [Concomitant]
     Dosage: UNK
  9. KLONOPIN [Concomitant]
     Dosage: UNK
  10. HYDROCODONE [Concomitant]
     Dosage: UNK

REACTIONS (1)
  - RECTAL CANCER [None]
